FAERS Safety Report 6480599-4 (Version None)
Quarter: 2009Q4

REPORT INFORMATION
  Report Type: 
  Country: None (occurrence: None)
  Receive Date: 20091208
  Receipt Date: 20091130
  Transmission Date: 20100525
  Serious: Yes (Other)
  Sender: FDA-Public Use
  Company Number: US-RB-025766-09

PATIENT
  Age: 26 Year
  Sex: Female

DRUGS (1)
  1. SUBOXONE [Suspect]
     Indication: DRUG USE FOR UNKNOWN INDICATION
     Dosage: UNKNOWN DOSING INFORMATION
     Route: 065

REACTIONS (6)
  - BODY TEMPERATURE DECREASED [None]
  - CONVULSION [None]
  - MENSTRUAL DISORDER [None]
  - MIGRAINE [None]
  - NAUSEA [None]
  - PANIC ATTACK [None]
